FAERS Safety Report 8512908-6 (Version None)
Quarter: 2012Q3

REPORT INFORMATION
  Report Type: 
  Country: None (occurrence: None)
  Receive Date: 20120716
  Receipt Date: 20120712
  Transmission Date: 20120928
  Serious: Yes (Other)
  Sender: FDA-Public Use
  Company Number: PHHY2012US059924

PATIENT

DRUGS (2)
  1. VENLAFAXINE [Suspect]
     Indication: MAJOR DEPRESSION
     Dosage: 150 MG/DAY
  2. INDINIVIR SULFATE [Interacting]
     Indication: HIV INFECTION

REACTIONS (3)
  - VIROLOGIC FAILURE [None]
  - LETHARGY [None]
  - DRUG INTERACTION [None]
